FAERS Safety Report 5628738-9 (Version None)
Quarter: 2008Q1

REPORT INFORMATION
  Report Type: 
  Country: None (occurrence: None)
  Receive Date: 20080215
  Receipt Date: 20080215
  Transmission Date: 20080703
  Serious: Yes (Life-Threatening)
  Sender: FDA-Public Use
  Company Number: None

PATIENT
  Age: 70 Year
  Sex: Female
  Weight: 51.7101 kg

DRUGS (3)
  1. LOVENOX [Suspect]
     Indication: DEEP VEIN THROMBOSIS
     Dosage: 80 MG QD SQ
     Route: 058
     Dates: start: 20080108, end: 20080212
  2. WARFARIN SODIUM [Suspect]
     Indication: DEEP VEIN THROMBOSIS
     Dosage: 10-28 MG WEEKLY PO
     Route: 048
     Dates: start: 20080108, end: 20080129
  3. LEVOTHYROXINE SODIUM [Concomitant]

REACTIONS (3)
  - ABASIA [None]
  - ATRIAL FIBRILLATION [None]
  - STEVENS-JOHNSON SYNDROME [None]
